FAERS Safety Report 4509048-X (Version None)
Quarter: 2004Q3

REPORT INFORMATION
  Report Type: 
  Country: None (occurrence: None)
  Receive Date: 20040928
  Receipt Date: 20040617
  Transmission Date: 20050211
  Serious: No
  Sender: FDA-Public Use
  Company Number: 04P-163-0264186-00

PATIENT
  Age: 59 Year
  Sex: Female

DRUGS (9)
  1. HUMIRA [Suspect]
     Indication: RHEUMATOID ARTHRITIS
     Dosage: 40 MG, 1 IN 2 WK, SUBCUTANEOUS
     Route: 058
     Dates: start: 20040528
  2. SULFASALAZINE [Concomitant]
  3. FOLIC ACID [Concomitant]
  4. GLUCOSAMINE [Concomitant]
  5. CALCIUM CITRATE [Concomitant]
  6. CONJUGATED ESTROGEN [Concomitant]
  7. CETIRIZINE HCL [Concomitant]
  8. ATORVASTATIN CALCIUM [Concomitant]
  9. METOPROLOL SUCCINATE [Concomitant]

REACTIONS (2)
  - INJECTION SITE BURNING [None]
  - INJECTION SITE STINGING [None]
